FAERS Safety Report 20113965 (Version 8)
Quarter: 2022Q3

REPORT INFORMATION
  Report Type: Report from Study
  Country: US (occurrence: US)
  Receive Date: 20211125
  Receipt Date: 20220803
  Transmission Date: 20221027
  Serious: Yes (Hospitalization)
  Sender: FDA-Public Use
  Company Number: US-NOVARTISTESTPH-NVSC2021US269991

PATIENT
  Sex: Male

DRUGS (1)
  1. ENTRESTO [Suspect]
     Active Substance: SACUBITRIL\VALSARTAN
     Indication: Product used for unknown indication
     Dosage: UNK
     Route: 065
     Dates: start: 2020

REACTIONS (8)
  - Gastrooesophageal reflux disease [Unknown]
  - Cough [Recovering/Resolving]
  - Weight decreased [Unknown]
  - Mobility decreased [Recovering/Resolving]
  - Eating disorder [Unknown]
  - Malaise [Recovering/Resolving]
  - Hypoacusis [Unknown]
  - Product dose omission in error [Unknown]
